FAERS Safety Report 9504874 (Version 1)
Quarter: 2013Q3

REPORT INFORMATION
  Report Type: Spontaneous
  Country: US (occurrence: US)
  Receive Date: 20130906
  Receipt Date: 20130906
  Transmission Date: 20140515
  Serious: No
  Sender: FDA-Public Use
  Company Number: US-009507513-1308USA009380

PATIENT
  Age: 48 Year
  Sex: Male

DRUGS (4)
  1. BETAMETHASONE DIPROPIONATE [Suspect]
     Indication: INTERVERTEBRAL DISC PROTRUSION
     Dosage: 2 ML, UNK
     Route: 008
  2. BETAMETHASONE DIPROPIONATE [Suspect]
     Indication: LUMBAR RADICULOPATHY
  3. BUPIVACAINE HYDROCHLORIDE [Suspect]
     Indication: INTERVERTEBRAL DISC PROTRUSION
     Dosage: 4 ML, UNK
  4. BUPIVACAINE HYDROCHLORIDE [Suspect]
     Indication: LUMBAR RADICULOPATHY

REACTIONS (1)
  - Paraparesis [Recovering/Resolving]
